FAERS Safety Report 17058132 (Version 4)
Quarter: 2020Q2

REPORT INFORMATION
  Report Type: Spontaneous
  Country: US (occurrence: US)
  Receive Date: 20191121
  Receipt Date: 20200401
  Transmission Date: 20200713
  Serious: Yes (Other)
  Sender: FDA-Public Use
  Company Number: US-PFIZER INC-2019500944

PATIENT
  Age: 87 Year
  Sex: Female
  Weight: 57 kg

DRUGS (2)
  1. IBRANCE [Suspect]
     Active Substance: PALBOCICLIB
     Indication: BREAST CANCER FEMALE
     Dosage: 75 MG, CYCLIC(14 TOTAL DAYS; 7 DAY OFF CYCLE)
  2. ESTOMYCIN [Concomitant]
     Dosage: UNK

REACTIONS (2)
  - Fall [Unknown]
  - Cervical vertebral fracture [Unknown]
